FAERS Safety Report 8901860 (Version 1)
Quarter: 2012Q4

REPORT INFORMATION
  Report Type: Spontaneous
  Country: US (occurrence: None)
  Receive Date: 20121109
  Receipt Date: 20121109
  Transmission Date: 20130627
  Serious: No
  Sender: FDA-Public Use
  Company Number: None

PATIENT
  Age: 68 Year
  Sex: Female
  Weight: 72.58 kg

DRUGS (1)
  1. LEVOFLOXACIN [Suspect]
     Dates: start: 20110829, end: 20110904

REACTIONS (7)
  - Joint range of motion decreased [None]
  - Joint crepitation [None]
  - Arthralgia [None]
  - Bone pain [None]
  - Tendon disorder [None]
  - Muscular weakness [None]
  - Muscle strain [None]
